FAERS Safety Report 7627598-4 (Version None)
Quarter: 2011Q3

REPORT INFORMATION
  Report Type: 
  Country: None (occurrence: None)
  Receive Date: 20110721
  Receipt Date: 20110714
  Transmission Date: 20111222
  Serious: Yes (Hospitalization, Other)
  Sender: FDA-Public Use
  Company Number: DK-PFIZER INC-2010123477

PATIENT
  Sex: Female

DRUGS (2)
  1. ZOLOFT [Suspect]
     Dosage: 150 MG, UNK
     Dates: start: 20060101, end: 20060101
  2. ZOLOFT [Suspect]
     Indication: AFFECTIVE DISORDER
     Dosage: 50 MG, UNK
     Dates: start: 20060101, end: 20060101

REACTIONS (26)
  - HYPOPITUITARISM [None]
  - GASTROINTESTINAL DISORDER [None]
  - DYSARTHRIA [None]
  - DRY MOUTH [None]
  - SUICIDAL IDEATION [None]
  - GAIT DISTURBANCE [None]
  - ARRHYTHMIA [None]
  - BLOOD URIC ACID INCREASED [None]
  - ALOPECIA [None]
  - RENAL DISORDER [None]
  - NERVOUS SYSTEM DISORDER [None]
  - TOOTH LOSS [None]
  - DEPRESSION [None]
  - COGNITIVE DISORDER [None]
  - FLUID RETENTION [None]
  - WEIGHT INCREASED [None]
  - PERSONALITY CHANGE [None]
  - PARAESTHESIA [None]
  - MUSCULOSKELETAL STIFFNESS [None]
  - ABNORMAL BEHAVIOUR [None]
  - SEROTONIN SYNDROME [None]
  - COORDINATION ABNORMAL [None]
  - FEELING ABNORMAL [None]
  - BLINDNESS [None]
  - DYSGRAPHIA [None]
  - FALL [None]
